FAERS Safety Report 5371686-2 (Version None)
Quarter: 2007Q2

REPORT INFORMATION
  Report Type: 
  Country: None (occurrence: None)
  Receive Date: 20070625
  Receipt Date: 20070611
  Transmission Date: 20071010
  Serious: Yes (Other)
  Sender: FDA-Public Use
  Company Number: 157467ISR

PATIENT
  Age: 16 Year
  Sex: Female

DRUGS (1)
  1. LORATADINE [Suspect]
     Dosage: 10 MG (10 MG, ONCE ONLY) ORAL
     Route: 048
     Dates: start: 20070608, end: 20070608

REACTIONS (2)
  - CONVULSION [None]
  - LOSS OF CONSCIOUSNESS [None]
